FAERS Safety Report 7422212-5 (Version None)
Quarter: 2011Q2

REPORT INFORMATION
  Report Type: 
  Country: None (occurrence: None)
  Receive Date: 20110418
  Receipt Date: 20110405
  Transmission Date: 20111010
  Serious: Yes (Hospitalization)
  Sender: FDA-Public Use
  Company Number: US-MYLANLABS-2011S1007280

PATIENT
  Age: 52 Year
  Sex: Male

DRUGS (11)
  1. PREDNISONE [Concomitant]
     Indication: PULMONARY SARCOIDOSIS
     Route: 065
  2. PREDNISONE [Concomitant]
     Route: 065
  3. PREDNISONE [Concomitant]
     Route: 065
  4. PANTOPRAZOLE SODIUM [Concomitant]
     Route: 065
  5. AZATHIOPRINE [Suspect]
     Indication: PULMONARY SARCOIDOSIS
     Route: 065
  6. FLUTICASONE PROPIONATE W/SALMETEROL [Concomitant]
     Dosage: FLUTICASONE PROPIONATE/SALMETEROL 500/50 MICROG 1 PUFF TWICE DAILY
     Route: 065
  7. LOVASTATIN [Concomitant]
     Route: 065
  8. IBANDRONIC ACID [Concomitant]
     Route: 065
  9. ALBUTEROL SULFATE AUTOHALER [Concomitant]
     Dosage: AS NEEDED
     Route: 065
  10. HYDROXYCHLOROQUINE SULFATE [Concomitant]
     Indication: PULMONARY SARCOIDOSIS
     Route: 065
  11. ZOLPIDEM [Concomitant]
     Dosage: AT BEDTIME
     Route: 065

REACTIONS (2)
  - RENAL FAILURE ACUTE [None]
  - PYREXIA [None]
